FAERS Safety Report 18953664 (Version 3)
Quarter: 2022Q4

REPORT INFORMATION
  Report Type: Report from Study
  Country: US (occurrence: US)
  Receive Date: 20210301
  Receipt Date: 20221223
  Transmission Date: 20230113
  Serious: Yes (Other)
  Sender: FDA-Public Use
  Company Number: US-TAKEDA-US201837279

PATIENT
  Sex: Female

DRUGS (1)
  1. HUMAN IMMUNOGLOBULIN G\HYALURONIDASE RECOMBINANT HUMAN [Suspect]
     Active Substance: HUMAN IMMUNOGLOBULIN G\HYALURONIDASE RECOMBINANT HUMAN
     Indication: Immunodeficiency common variable
     Dosage: 25.5 GRAM, Q2WEEKS
     Route: 065

REACTIONS (7)
  - Rheumatoid arthritis [Unknown]
  - Lower limb fracture [Unknown]
  - Asthma [Unknown]
  - Weight decreased [Unknown]
  - Infusion site swelling [Unknown]
  - Infusion site erythema [Unknown]
  - Influenza [Recovering/Resolving]
